FAERS Safety Report 5120774-4 (Version None)
Quarter: 2006Q4

REPORT INFORMATION
  Report Type: 
  Country: None (occurrence: None)
  Receive Date: 20061003
  Receipt Date: 20061003
  Transmission Date: 20070319
  Serious: Yes (Other)
  Sender: FDA-Public Use
  Company Number: None

PATIENT
  Age: 45 Year
  Sex: Male
  Weight: 92.5338 kg

DRUGS (2)
  1. HYDROCODONE BITARTRATE [Suspect]
     Indication: INTERVERTEBRAL DISC DEGENERATION
     Dosage: 1 TABLET QID PO
     Route: 048
     Dates: start: 20060922, end: 20060928
  2. HYDROCODONE BITARTRATE [Suspect]
     Indication: PAIN
     Dosage: 1 TABLET QID PO
     Route: 048
     Dates: start: 20060922, end: 20060928

REACTIONS (3)
  - DRUG EFFECT DECREASED [None]
  - INADEQUATE ANALGESIA [None]
  - PHARMACEUTICAL PRODUCT COMPLAINT [None]
